FAERS Safety Report 11213102 (Version 2)
Quarter: 2015Q3

REPORT INFORMATION
  Report Type: Spontaneous
  Country: US (occurrence: US)
  Receive Date: 20150623
  Receipt Date: 20150715
  Transmission Date: 20151125
  Serious: Yes (Life-Threatening, Hospitalization)
  Sender: FDA-Public Use
  Company Number: US-ASTRAZENECA-2015SE59839

PATIENT
  Age: 57 Year
  Sex: Male
  Weight: 98.9 kg

DRUGS (3)
  1. NOLVADEX [Concomitant]
     Active Substance: TAMOXIFEN CITRATE
     Dosage: 16 AC, THREE TIMES A DAY
     Route: 058
     Dates: start: 20140624
  2. FARXIGA [Suspect]
     Active Substance: DAPAGLIFLOZIN PROPANEDIOL
     Indication: TYPE 2 DIABETES MELLITUS
     Route: 048
     Dates: start: 20150206, end: 20150512
  3. LEVSMIH [Concomitant]
     Route: 058
     Dates: start: 20010421

REACTIONS (3)
  - Diabetic ketoacidosis [Recovered/Resolved]
  - Dehydration [Unknown]
  - Diabetes mellitus inadequate control [Unknown]

NARRATIVE: CASE EVENT DATE: 20150512
